FAERS Safety Report 12205197 (Version 1)
Quarter: 2016Q1

REPORT INFORMATION
  Report Type: Spontaneous
  Country: NO (occurrence: NO)
  Receive Date: 20160323
  Receipt Date: 20160323
  Transmission Date: 20160526
  Serious: Yes (Other)
  Sender: FDA-Public Use
  Company Number: NO-JNJFOC-20160316190

PATIENT
  Age: 7 Decade
  Sex: Male

DRUGS (10)
  1. IMBRUVICA [Suspect]
     Active Substance: IBRUTINIB
     Indication: CHRONIC LYMPHOCYTIC LEUKAEMIA
     Route: 048
     Dates: start: 201412
  2. SOMAC [Concomitant]
     Active Substance: PANTOPRAZOLE SODIUM
  3. METFORMIN [Concomitant]
     Active Substance: METFORMIN HYDROCHLORIDE
  4. HUMAN INSULATARD [Concomitant]
     Active Substance: INSULIN HUMAN
  5. ALBYL-E [Concomitant]
     Active Substance: ASPIRIN\MAGNESIUM OXIDE
  6. KALEORID [Concomitant]
     Active Substance: POTASSIUM CHLORIDE
  7. SIMVASTATIN. [Concomitant]
     Active Substance: SIMVASTATIN
  8. EXFORGE [Concomitant]
     Active Substance: AMLODIPINE BESYLATE\VALSARTAN
  9. METOPROLOL. [Concomitant]
     Active Substance: METOPROLOL
  10. MAREVAN [Concomitant]
     Active Substance: WARFARIN SODIUM

REACTIONS (1)
  - Interstitial lung disease [Not Recovered/Not Resolved]
